FAERS Safety Report 6079126-5 (Version None)
Quarter: 2009Q1

REPORT INFORMATION
  Report Type: 
  Country: None (occurrence: None)
  Receive Date: 20090216
  Receipt Date: 20090206
  Transmission Date: 20090719
  Serious: Yes (Congenital Anomaly)
  Sender: FDA-Public Use
  Company Number: A0748185A

PATIENT
  Sex: Male

DRUGS (9)
  1. PAXIL [Suspect]
     Indication: DEPRESSION
     Dosage: 40MG PER DAY
  2. VITAMIN TAB [Concomitant]
  3. ZOLOFT [Concomitant]
     Indication: BIPOLAR DISORDER
     Dosage: 50MG PER DAY
     Dates: start: 20050126
  4. PROMETHAZINE [Concomitant]
     Indication: NAUSEA
     Dosage: 25MG AS REQUIRED
     Dates: start: 20040817
  5. ZITHROMAX [Concomitant]
     Dosage: 250MG PER DAY
     Dates: start: 20040817
  6. UNSPECIFIED MEDICATION [Concomitant]
     Indication: MIGRAINE
     Dates: start: 20040929
  7. PROMETHAZINE HCL AND CODEINE [Concomitant]
     Indication: COUGH
     Dates: start: 20041019
  8. BUPROPION HYDROCHLORIDE [Concomitant]
     Indication: MIGRAINE
     Dosage: 150MG TWICE PER DAY
     Dates: start: 20041220
  9. AMOXICILLIN [Concomitant]

REACTIONS (6)
  - ATRIAL SEPTAL DEFECT [None]
  - CONGENITAL ANOMALY [None]
  - DRUG EXPOSURE DURING PREGNANCY [None]
  - HEARING IMPAIRED [None]
  - OCULOAURICULOVERTEBRAL DYSPLASIA [None]
  - VENTRICULAR SEPTAL DEFECT [None]
